FAERS Safety Report 20577924 (Version 1)
Quarter: 2022Q1

REPORT INFORMATION
  Report Type: Spontaneous
  Country: US (occurrence: US)
  Receive Date: 20220310
  Receipt Date: 20220310
  Transmission Date: 20220424
  Serious: No
  Sender: FDA-Public Use
  Company Number: US-TERSERA THERAPEUTICS LLC-2021TRS001874

PATIENT

DRUGS (3)
  1. XERMELO [Suspect]
     Active Substance: TELOTRISTAT ETHYL
     Indication: Neuroendocrine tumour
     Dosage: 250 MG, TID
     Route: 065
     Dates: start: 20210405
  2. XERMELO [Suspect]
     Active Substance: TELOTRISTAT ETHYL
     Dosage: 250 MG, TID W/MEALS
     Route: 065
     Dates: end: 20210504
  3. LANREOTIDE ACETATE [Concomitant]
     Active Substance: LANREOTIDE ACETATE
     Indication: Neuroendocrine tumour
     Dosage: 120 MG, MONTHLY
     Route: 065
     Dates: end: 20210504

REACTIONS (7)
  - Flatulence [Recovering/Resolving]
  - Constipation [Unknown]
  - Nausea [Recovering/Resolving]
  - Haemorrhoids [Unknown]
  - Anal rash [Unknown]
  - Dizziness [Recovering/Resolving]
  - Peripheral swelling [Recovering/Resolving]

NARRATIVE: CASE EVENT DATE: 20210401
